FAERS Safety Report 12811850 (Version 1)
Quarter: 2016Q4

REPORT INFORMATION
  Report Type: Report from Study
  Country: FR (occurrence: FR)
  Receive Date: 20161005
  Receipt Date: 20161005
  Transmission Date: 20170207
  Serious: Yes (Other)
  Sender: FDA-Public Use
  Company Number: FR-PFIZER INC-2016459891

PATIENT

DRUGS (2)
  1. OCTREOTIDE ACETATE. [Suspect]
     Active Substance: OCTREOTIDE ACETATE
     Indication: NON-SECRETORY ADENOMA OF PITUITARY
     Dosage: 30 MG, MONTHLY
  2. CABERGOLINE. [Suspect]
     Active Substance: CABERGOLINE
     Indication: NON-SECRETORY ADENOMA OF PITUITARY
     Dosage: 3.5 MG, WEEKLY (INCREASING DOSE UP TO 3.5 MG WEEKLY FOR 12 MONTHS)

REACTIONS (1)
  - Serotonin syndrome [Unknown]
